FAERS Safety Report 11041701 (Version 2)
Quarter: 2015Q2

REPORT INFORMATION
  Report Type: Spontaneous
  Country: US (occurrence: US)
  Receive Date: 20150416
  Receipt Date: 20150525
  Transmission Date: 20150821
  Serious: Yes (Other)
  Sender: FDA-Public Use
  Company Number: US-JNJFOC-20140214012

PATIENT
  Age: 70 Year
  Sex: Female
  Weight: 105.46 kg

DRUGS (6)
  1. ASPIRIN. [Suspect]
     Active Substance: ASPIRIN
     Indication: PRODUCT USED FOR UNKNOWN INDICATION
     Route: 065
  2. POTASSIUM [Concomitant]
     Active Substance: POTASSIUM
     Route: 065
  3. XARELTO [Suspect]
     Active Substance: RIVAROXABAN
     Indication: ATRIAL FIBRILLATION
     Route: 048
     Dates: start: 20130905, end: 20140210
  4. COUMADIN [Suspect]
     Active Substance: WARFARIN SODIUM
     Indication: PRODUCT USED FOR UNKNOWN INDICATION
     Dosage: 5 MGX 5 DAYS, 5MGX 2 DAYS.
     Route: 065
  5. XARELTO [Suspect]
     Active Substance: RIVAROXABAN
     Indication: CEREBROVASCULAR ACCIDENT PROPHYLAXIS
     Route: 048
     Dates: start: 20130905, end: 20140210
  6. POTASSIUM [Concomitant]
     Active Substance: POTASSIUM
     Route: 065
     Dates: start: 20140127

REACTIONS (6)
  - Blood electrolytes decreased [Unknown]
  - International normalised ratio increased [Unknown]
  - Contusion [Unknown]
  - Rectal haemorrhage [Recovered/Resolved]
  - Petechiae [Unknown]
  - Incorrect dose administered [Unknown]

NARRATIVE: CASE EVENT DATE: 20140127
